FAERS Safety Report 4617499-8 (Version None)
Quarter: 2005Q1

REPORT INFORMATION
  Report Type: 
  Country: None (occurrence: None)
  Receive Date: 20050324
  Receipt Date: 20040903
  Transmission Date: 20050727
  Serious: Yes (Life-Threatening, Hospitalization)
  Sender: FDA-Public Use
  Company Number: 200412023DE

PATIENT
  Age: 41 Year
  Sex: Male
  Weight: 80 kg

DRUGS (4)
  1. KETEK [Suspect]
     Indication: TONSILLITIS
     Route: 048
     Dates: start: 20040528, end: 20040606
  2. KETEK [Suspect]
     Indication: VIRAL INFECTION
     Route: 048
     Dates: start: 20040528, end: 20040606
  3. HOMEOPATIC PREPARATION [Concomitant]
     Indication: SINUSITIS
     Dates: start: 20040501, end: 20040501
  4. HOMEOPATIC PREPARATION [Concomitant]
     Indication: VIRAL INFECTION
     Dates: start: 20040501, end: 20040501

REACTIONS (39)
  - BLOOD IMMUNOGLOBULIN G INCREASED [None]
  - BRAIN DAMAGE [None]
  - BRAIN OEDEMA [None]
  - C-REACTIVE PROTEIN INCREASED [None]
  - CEREBRAL HAEMORRHAGE [None]
  - CYTOMEGALOVIRUS ANTIBODY POSITIVE [None]
  - DEPRESSED LEVEL OF CONSCIOUSNESS [None]
  - DISORIENTATION [None]
  - DISTURBANCE IN ATTENTION [None]
  - ELECTROENCEPHALOGRAM ABNORMAL [None]
  - EPSTEIN-BARR VIRUS ANTIBODY POSITIVE [None]
  - EUPHORIC MOOD [None]
  - HEADACHE [None]
  - HEMIPARESIS [None]
  - HERPES SIMPLEX [None]
  - IMPAIRED WORK ABILITY [None]
  - LEUKOCYTOSIS [None]
  - LOSS OF CONSCIOUSNESS [None]
  - LYMPHOCYTE COUNT INCREASED [None]
  - LYMPHOCYTE PERCENTAGE DECREASED [None]
  - MEMORY IMPAIRMENT [None]
  - MENTAL DISORDER [None]
  - MENTAL IMPAIRMENT [None]
  - MENTAL RETARDATION SEVERITY UNSPECIFIED [None]
  - MONOCYTE PERCENTAGE INCREASED [None]
  - NAUSEA [None]
  - NERVOUS SYSTEM DISORDER [None]
  - NEUTROPHIL COUNT INCREASED [None]
  - PAIN [None]
  - PHLEBOTHROMBOSIS [None]
  - PLATELET COUNT INCREASED [None]
  - PSYCHOMOTOR RETARDATION [None]
  - PUPILS UNEQUAL [None]
  - RED BLOOD CELL SEDIMENTATION RATE INCREASED [None]
  - SOMNOLENCE [None]
  - STAPHYLOCOCCAL INFECTION [None]
  - SUBDURAL EFFUSION [None]
  - SUBDURAL EMPYEMA [None]
  - SUBDURAL HAEMATOMA [None]
